FAERS Safety Report 10258012 (Version 9)
Quarter: 2018Q3

REPORT INFORMATION
  Report Type: Spontaneous
  Country: US (occurrence: US)
  Receive Date: 20140625
  Receipt Date: 20180814
  Transmission Date: 20181010
  Serious: Yes (Other)
  Sender: FDA-Public Use
  Company Number: US-PFIZER INC-2014171905

PATIENT
  Age: 49 Year
  Sex: Male
  Weight: 117 kg

DRUGS (25)
  1. LYRICA [Suspect]
     Active Substance: PREGABALIN
     Indication: MUSCLE SPASMS
     Dosage: 150 MG, 3X/DAY
     Route: 048
  2. LOSARTAN POTASSIUM. [Concomitant]
     Active Substance: LOSARTAN POTASSIUM
     Dosage: 50 MG, 1X/DAY (EVERY NIGHT AT BEDTIME TAKE 1 TAB, 30 DAYS, 5 REFILLS)
     Route: 048
  3. MUPIROCIN. [Concomitant]
     Active Substance: MUPIROCIN
     Indication: SKIN LESION
     Dosage: UNK UNK, AS NEEDED (14 DAYS, 1 REFILLS)
  4. BROMFED DM [Concomitant]
     Active Substance: BROMPHENIRAMINE MALEATE\DEXTROMETHORPHAN HYDROBROMIDE\PSEUDOEPHEDRINE HYDROCHLORIDE
     Dosage: UNK UNK, 4X/DAY [BROMPHENIRAMINE MALEATE: 2 MG, DEXTROMETHORPHAN HYDROBROMIDE: 10 MG, PSEUDOEPHEDRIN
  5. CLOTRIMAZOLE. [Concomitant]
     Active Substance: CLOTRIMAZOLE
     Indication: SKIN LESION
     Dosage: UNK UNK, 2X/DAY (TWICE A DAY APPLY ON SKIN LESIONS, 15 DAYS, 0 REFILLS)
  6. FLUTICASONE PROPIONATE. [Concomitant]
     Active Substance: FLUTICASONE PROPIONATE
     Indication: SKIN LESION
     Dosage: UNK UNK, 2X/DAY (APPLY ON SKIN LESIONS, 15 DAYS, 0 REFILLS)
     Route: 061
  7. PENICILLIN V POTASSIUM. [Concomitant]
     Active Substance: PENICILLIN V POTASSIUM
     Dosage: 500 MG, 2X/DAY (TAKE 1 TAB, 15 DAYS, 0 REFILLS)
     Route: 048
  8. LYRICA [Suspect]
     Active Substance: PREGABALIN
     Indication: NEUROPATHY PERIPHERAL
     Dosage: 150 MG, 3X/DAY
     Route: 048
     Dates: start: 2012, end: 201406
  9. LYRICA [Suspect]
     Active Substance: PREGABALIN
     Indication: PAIN IN EXTREMITY
  10. NAPROXEN. [Concomitant]
     Active Substance: NAPROXEN
     Indication: PAIN
     Dosage: 500 MG, AS NEEDED (TWICE DAILY AFTER MEALS AS NEEDED FOR PAIN, 30 DAYS, 0 REFILLS)
     Route: 048
  11. VITAMIN D [Concomitant]
     Active Substance: CHOLECALCIFEROL
     Dosage: 50000 IU, WEEKLY (TAKE 1 CAPS, 28 DAYS, 3 REFILLS)
     Route: 048
  12. LYRICA [Suspect]
     Active Substance: PREGABALIN
     Indication: FIBROMYALGIA
     Dosage: 150 MG, 3X/DAY
     Route: 048
     Dates: end: 20150305
  13. GABAPENTIN. [Concomitant]
     Active Substance: GABAPENTIN
     Dosage: 600 MG, 3X/DAY (ONE TABLET BY MOUTH THREE TIMES DAILY, 30 DAYS, 5 REFILLS)
     Route: 048
  14. HYDROCORTISONE. [Concomitant]
     Active Substance: HYDROCORTISONE
     Indication: PRURITUS
  15. AMOXICILLIN?POT CLAVULANATE [Concomitant]
     Active Substance: AMOXICILLIN\CLAVULANATE POTASSIUM
     Dosage: UNK UNK, 2X/DAY [AMOXICILLIN: 875 MG]/[CLAVULANATE POTASSIUM: 125 MG] TAKE 1 TAB, 10 DAYS, 0 REFILLS
     Route: 048
  16. METFORMIN HCL [Concomitant]
     Active Substance: METFORMIN HYDROCHLORIDE
     Dosage: 500 MG, 1X/DAY (NIGHTLY AT BEDTIME, 30 DAYS, 5 REFILLS)
     Route: 048
  17. AMOXICILLIN. [Concomitant]
     Active Substance: AMOXICILLIN
     Dosage: 500 MG, 3X/DAY (TAKE 1 CAPS, 10 DAYS, 0 REFILLS)
     Route: 048
  18. CEFALEXIN [Concomitant]
     Active Substance: CEPHALEXIN
     Dosage: UNK UNK, 4X/DAY(FOUR TIMES A DAY TAKE 1 CAPS, 15 DAYS, 0 REFILLS)
  19. CLONAZEPAM. [Concomitant]
     Active Substance: CLONAZEPAM
     Indication: ANXIETY
     Dosage: UNK UNK, AS NEEDED (TWICE A DAY TAKE 1 TAB AS NEEDED FOR ANXIETY, 30 DAYS, 3 REFILLS)
     Route: 048
  20. HYDROCORTISONE. [Concomitant]
     Active Substance: HYDROCORTISONE
     Indication: SKIN LESION
     Dosage: UNK UNK, 2X/DAY (TWICE A DAY APPLY ON SKIN LESIONS FOR ITCHING, 15 DAYS, 0 REFILLS)
  21. PRAVASTATIN SODIUM. [Concomitant]
     Active Substance: PRAVASTATIN SODIUM
     Dosage: 20 MG, 1X/DAY (NIGHTLY AT BEDTIME, 30 DAYS, 5 REFILLS)
     Route: 048
  22. TRIAMCINOLONE ACETONIDE. [Concomitant]
     Active Substance: TRIAMCINOLONE ACETONIDE
     Indication: SKIN LESION
     Dosage: UNK UNK, 3X/DAY (THREE TIMES A DAY FOR 10? 14 DAYS, 15 DAYS, 1 REFILLS)
  23. CYCLOBENZAPRINE HCL [Concomitant]
     Active Substance: CYCLOBENZAPRINE HYDROCHLORIDE
     Indication: HYPOTONIA
     Dosage: 5 MG, AS NEEDED (EVERY NIGHT AT BEDTIME AS NEEDED FOR MUSCLE RELAXATION, 30 DAYS, 3 REFILLS)
     Route: 048
  24. SILVER SULFADIAZINE. [Concomitant]
     Active Substance: SILVER SULFADIAZINE
     Indication: SKIN LESION
     Dosage: UNK UNK, 2X/DAY (DIRECTED, 10 DAYS, 3 REFILLS)
  25. UREACIN [Concomitant]
     Dosage: UNK UNK, 1X/DAY (30 DAYS, 0 REFILLS)

REACTIONS (17)
  - Burning sensation [Unknown]
  - Muscle twitching [Unknown]
  - Wound [Unknown]
  - Mobility decreased [Unknown]
  - Hypoaesthesia [Unknown]
  - Post procedural complication [Unknown]
  - Pain [Unknown]
  - Sluggishness [Unknown]
  - Large intestine polyp [Unknown]
  - Diarrhoea [Unknown]
  - Blepharospasm [Unknown]
  - Insomnia [Unknown]
  - Peripheral swelling [Unknown]
  - Thrombosis [Recovered/Resolved]
  - Localised infection [Not Recovered/Not Resolved]
  - Back pain [Not Recovered/Not Resolved]
  - Sciatic nerve neuropathy [Unknown]

NARRATIVE: CASE EVENT DATE: 201406
